FAERS Safety Report 5814741-2 (Version None)
Quarter: 2008Q3

REPORT INFORMATION
  Report Type: 
  Country: None (occurrence: None)
  Receive Date: 20080715
  Receipt Date: 20080701
  Transmission Date: 20090109
  Serious: Yes (Other)
  Sender: FDA-Public Use
  Company Number: TPH-00066

PATIENT
  Age: 19 Year
  Sex: Female

DRUGS (2)
  1. TRIQUILAR [Suspect]
     Indication: ORAL CONTRACEPTION
     Dosage: ORAL
     Route: 048
     Dates: start: 20000101, end: 20001001
  2. PRIMOLUT NOR (NORETHISTERONE ACETATE) [Suspect]
     Indication: UTERINE HAEMORRHAGE
     Dosage: ORAL
     Route: 048
     Dates: start: 20080601, end: 20080601

REACTIONS (5)
  - BURNING SENSATION [None]
  - DYSGEUSIA [None]
  - HEADACHE [None]
  - HEPATITIS [None]
  - PRURITUS [None]
